FAERS Safety Report 10441850 (Version 4)
Quarter: 2014Q4

REPORT INFORMATION
  Report Type: Spontaneous
  Country: US (occurrence: US)
  Receive Date: 20140909
  Receipt Date: 20141110
  Transmission Date: 20150528
  Serious: Yes (Hospitalization, Other)
  Sender: FDA-Public Use
  Company Number: US-GLAXOSMITHKLINE-A1048693A

PATIENT

DRUGS (18)
  1. SPIRIVA [Concomitant]
     Active Substance: TIOTROPIUM BROMIDE MONOHYDRATE
  2. XOPENEX [Concomitant]
     Active Substance: LEVALBUTEROL HYDROCHLORIDE
  3. TRAMADOL HCL [Concomitant]
     Active Substance: TRAMADOL HYDROCHLORIDE
  4. COREG [Suspect]
     Active Substance: CARVEDILOL
     Dates: start: 20081204
  5. MORPHINE [Suspect]
     Active Substance: MORPHINE
     Indication: PAIN
     Route: 065
  6. COUMADIN [Suspect]
     Active Substance: WARFARIN SODIUM
     Indication: CARDIAC VENTRICULAR THROMBOSIS
     Route: 065
  7. LANTUS [Concomitant]
     Active Substance: INSULIN GLARGINE
  8. COREG [Suspect]
     Active Substance: CARVEDILOL
     Indication: CARDIAC DISORDER
     Dosage: 25 MG TABLET.
     Route: 048
     Dates: start: 20081204
  9. FUROSEMIDE. [Suspect]
     Active Substance: FUROSEMIDE
     Indication: PRODUCT USED FOR UNKNOWN INDICATION
     Route: 065
  10. TYLENOL ARTHRITIS PAIN [Concomitant]
     Active Substance: ACETAMINOPHEN
  11. ADVAIR DISKUS [Suspect]
     Active Substance: FLUTICASONE PROPIONATE\SALMETEROL XINAFOATE
     Indication: CHRONIC OBSTRUCTIVE PULMONARY DISEASE
     Dosage: 1 PUFF(S), BID
     Route: 055
  12. NOVOLOG [Concomitant]
     Active Substance: INSULIN ASPART
  13. POTASSIUM CHLORIDE. [Concomitant]
     Active Substance: POTASSIUM CHLORIDE
  14. OMEPRAZOLE. [Concomitant]
     Active Substance: OMEPRAZOLE
  15. COZAAR [Concomitant]
     Active Substance: LOSARTAN POTASSIUM
  16. NEURONTIN [Concomitant]
     Active Substance: GABAPENTIN
  17. LIPITOR [Concomitant]
     Active Substance: ATORVASTATIN CALCIUM
  18. BABY ASPIRIN [Concomitant]
     Active Substance: ASPIRIN

REACTIONS (25)
  - Tremor [Unknown]
  - Asthenia [Unknown]
  - Transient ischaemic attack [Unknown]
  - Memory impairment [Not Recovered/Not Resolved]
  - Atrial fibrillation [Unknown]
  - Haemorrhage [Not Recovered/Not Resolved]
  - Pain in extremity [Unknown]
  - Hospitalisation [Recovered/Resolved]
  - Toxicity to various agents [Unknown]
  - Ill-defined disorder [Unknown]
  - Peripheral swelling [Not Recovered/Not Resolved]
  - Infection [Not Recovered/Not Resolved]
  - Neuropathy peripheral [Unknown]
  - Extremity necrosis [Not Recovered/Not Resolved]
  - Micturition urgency [Not Recovered/Not Resolved]
  - Adverse event [Unknown]
  - Musculoskeletal disorder [Unknown]
  - Cardiac ventricular thrombosis [Unknown]
  - Contusion [Not Recovered/Not Resolved]
  - Dysgraphia [Unknown]
  - Surgery [Unknown]
  - Swelling face [Recovering/Resolving]
  - Dysphonia [Not Recovered/Not Resolved]
  - Joint crepitation [Not Recovered/Not Resolved]
  - Drug hypersensitivity [Unknown]

NARRATIVE: CASE EVENT DATE: 201403
